FAERS Safety Report 12484153 (Version 1)
Quarter: 2016Q2

REPORT INFORMATION
  Report Type: Spontaneous
  Country: US (occurrence: None)
  Receive Date: 20160620
  Receipt Date: 20160620
  Transmission Date: 20160815
  Serious: Yes (Life-Threatening, Other)
  Sender: FDA-Public Use
  Company Number: None

PATIENT
  Age: 8 Year
  Sex: Male
  Weight: 7.98 kg

DRUGS (4)
  1. INFANT^S IBUPROFEN 50MG/1.25ML, 50MG [Suspect]
     Active Substance: IBUPROFEN
     Indication: PYREXIA
     Route: 048
     Dates: start: 20160615, end: 20160616
  2. INFANT^S IBUPROFEN 50MG/1.25ML, 50MG [Suspect]
     Active Substance: IBUPROFEN
     Indication: PAIN
     Route: 048
     Dates: start: 20160615, end: 20160616
  3. IBUPROFEN INFANT DROPS [Concomitant]
  4. DIFLUCAN [Concomitant]
     Active Substance: FLUCONAZOLE

REACTIONS (10)
  - Protrusion tongue [None]
  - Cough [None]
  - Infantile spitting up [None]
  - Pain [None]
  - Screaming [None]
  - Grimacing [None]
  - Tremor [None]
  - Product contamination [None]
  - Oral candidiasis [None]
  - Product label counterfeit [None]

NARRATIVE: CASE EVENT DATE: 20160615
